FAERS Safety Report 8065253-X (Version None)
Quarter: 2012Q1

REPORT INFORMATION
  Report Type: 
  Country: None (occurrence: None)
  Receive Date: 20120117
  Receipt Date: 20111230
  Transmission Date: 20120608
  Serious: Yes (Other)
  Sender: FDA-Public Use
  Company Number: NO-1189763

PATIENT
  Age: 83 Year
  Sex: Male

DRUGS (7)
  1. BETADINE OPHTHALMIC 0.5% OPHTHALMIC SOLUTION (BETADINE) [Suspect]
     Indication: PREOPERATIVE CARE
     Dosage: FOR 2 MINUTES BEFORE SURGERY OPTHALMIC
     Route: 047
  2. PHENYLEPHRINE EYE DROPS (PHENYLEPHRINE) [Suspect]
     Indication: PREOPERATIVE CARE
     Dosage: TOPICAL
     Route: 061
  3. PHENYLEPHRINE 1.5% (PHENYLEPHRINE) [Suspect]
     Indication: PREOPERATIVE CARE
     Dosage: 0.15-0.30 ML MIXTURE WITH LIDOCAINE 10 MG/ML, INTRAOCULAR
     Route: 031
  4. CEFUROXIME [Suspect]
     Indication: ANTIBIOTIC PROPHYLAXIS
     Dosage: 1 MG, INTRAOCULAR
     Route: 031
  5. CYCLOPENTOLATE EYE DROPS (CYCLOPENTOLATE) [Suspect]
     Indication: PREOPERATIVE CARE
     Dosage: TOPICAL
     Route: 061
  6. MAXIDEX OPHTHALMIC 0.1% OPHTHALMIC  SUSPENSION (DEXAMETHASONE) [Suspect]
     Indication: PREOPERATIVE CARE
     Dosage: 0.1% TID; 0.1% BID, TOPICAL
     Route: 061
  7. LIDOCAINE 1% [Suspect]
     Indication: PREOPERATIVE CARE
     Dosage: 0.15-0.30 ML MIXTURE WITH PHENYLEPHRINE 15 MG/ML, INTRAOCULAR
     Route: 031

REACTIONS (1)
  - ENDOPHTHALMITIS [None]
